FAERS Safety Report 5771437-3 (Version None)
Quarter: 2008Q2

REPORT INFORMATION
  Report Type: 
  Country: None (occurrence: None)
  Receive Date: 20080613
  Receipt Date: 20080602
  Transmission Date: 20081010
  Serious: Yes (Other)
  Sender: FDA-Public Use
  Company Number: PHHY2008BR10259

PATIENT
  Age: 33 Year
  Sex: Male
  Weight: 70 kg

DRUGS (1)
  1. MELLARIL [Suspect]
     Dosage: 100 MG DAILY
     Route: 048

REACTIONS (1)
  - HAEMATOSPERMIA [None]
